FAERS Safety Report 24740283 (Version 1)
Quarter: 2024Q4

REPORT INFORMATION
  Report Type: Spontaneous
  Country: US (occurrence: US)
  Receive Date: 20241216
  Receipt Date: 20241216
  Transmission Date: 20250115
  Serious: No
  Sender: SANDOZ
  Company Number: US-SANDOZ-SDZ2024US101842

PATIENT
  Sex: Female

DRUGS (5)
  1. FENOFIBRATE [Suspect]
     Active Substance: FENOFIBRATE
     Indication: Hidradenitis
     Dosage: 54 MG, QD
     Route: 048
  2. METOPROLOL [Suspect]
     Active Substance: METOPROLOL
     Indication: Hidradenitis
     Dosage: 100 MG, QD
     Route: 048
  3. PRAZOSIN HYDROCHLORIDE [Suspect]
     Active Substance: PRAZOSIN HYDROCHLORIDE
     Indication: Hidradenitis
     Dosage: 2 MG, QD
     Route: 048
  4. QUETIAPINE [Suspect]
     Active Substance: QUETIAPINE
     Indication: Hidradenitis
     Dosage: 2 MG, QD
     Route: 048
  5. ROSUVASTATIN CALCIUM [Suspect]
     Active Substance: ROSUVASTATIN CALCIUM
     Indication: Hidradenitis
     Dosage: UNK
     Route: 065

REACTIONS (2)
  - Breast cyst [Recovering/Resolving]
  - Dermal cyst [Recovering/Resolving]
